FAERS Safety Report 22694209 (Version 14)
Quarter: 2024Q3

REPORT INFORMATION
  Report Type: Report from Study
  Country: CN (occurrence: CN)
  Receive Date: 20230711
  Receipt Date: 20240724
  Transmission Date: 20241017
  Serious: Yes (Other)
  Sender: GILEAD
  Company Number: CN-FOSUNKITE-FOSUNKITE-20230730

PATIENT
  Age: 59 Year
  Sex: Female

DRUGS (5)
  1. AXICABTAGENE CILOLEUCEL [Suspect]
     Active Substance: AXICABTAGENE CILOLEUCEL
     Indication: Non-Hodgkin^s lymphoma
     Dosage: 1.2?10^8 CELLS (NUMBER OF CAR-T CELLS)
     Route: 042
     Dates: start: 20230404, end: 20230404
  2. CYCLOPHOSPHAMIDE [Suspect]
     Active Substance: CYCLOPHOSPHAMIDE
     Indication: Lymphodepletion
     Dosage: 675 MG
     Route: 041
     Dates: start: 20230330, end: 20230401
  3. FLUDARABINE [Suspect]
     Active Substance: FLUDARABINE PHOSPHATE
     Indication: Lymphodepletion
     Dosage: 30.4 MG, IVGTT
     Route: 041
     Dates: start: 20230330, end: 20230401
  4. ZANUBRUTINIB [Concomitant]
     Active Substance: ZANUBRUTINIB
     Indication: Non-Hodgkin^s lymphoma
     Dosage: ACCUMULATED DOSE 10560 MG, TREATMENT CYCLE WAS UNKNOWN.
     Route: 048
     Dates: start: 20230303, end: 20230404
  5. ZANUBRUTINIB [Concomitant]
     Active Substance: ZANUBRUTINIB
     Dosage: ACCUMULATED DOSE AND TREATMENT CYCLE WERE UNKNOWN
     Route: 048
     Dates: start: 20230405

REACTIONS (49)
  - Hepatic failure [Not Recovered/Not Resolved]
  - Pneumonia [Recovered/Resolved]
  - Cytokine release syndrome [Recovered/Resolved]
  - White blood cell count decreased [Not Recovered/Not Resolved]
  - Neutrophil count decreased [Not Recovered/Not Resolved]
  - Lymphocyte count decreased [Not Recovered/Not Resolved]
  - Hypoalbuminaemia [Recovered/Resolved]
  - Hypomagnesaemia [Recovered/Resolved]
  - Cytokine increased [Not Recovered/Not Resolved]
  - Oedema peripheral [Recovered/Resolved]
  - Gamma-glutamyltransferase increased [Recovered/Resolved]
  - C-reactive protein increased [Recovered/Resolved]
  - Asthenia [Recovered/Resolved]
  - Chest discomfort [Recovered/Resolved]
  - Platelet count decreased [Not Recovered/Not Resolved]
  - Hypophosphataemia [Recovered/Resolved]
  - N-terminal prohormone brain natriuretic peptide increased [Recovered/Resolved]
  - Generalised oedema [Recovered/Resolved]
  - Oedema peripheral [Recovered/Resolved]
  - Oedema peripheral [Recovered/Resolved]
  - Oedema peripheral [Recovered/Resolved]
  - Alanine aminotransferase increased [Recovered/Resolved]
  - Face oedema [Recovered/Resolved]
  - Skin lesion [Recovered/Resolved]
  - Skin lesion [Recovered/Resolved]
  - Skin lesion [Recovered/Resolved]
  - Mouth ulceration [Recovered/Resolved]
  - Mouth ulceration [Recovered/Resolved]
  - Insomnia [Recovered/Resolved]
  - Skin lesion [Recovered/Resolved]
  - Hypocalcaemia [Recovered/Resolved]
  - Anaemia [Not Recovered/Not Resolved]
  - Face oedema [Recovered/Resolved]
  - Skin lesion [Recovered/Resolved]
  - Hepatic function abnormal [Recovered/Resolved]
  - Pain in extremity [Recovered/Resolved]
  - Eye pruritus [Recovered/Resolved]
  - Skin lesion [Recovered/Resolved]
  - Skin lesion [Recovered/Resolved]
  - Serum ferritin increased [Not Recovered/Not Resolved]
  - Immunoglobulins decreased [Not Recovered/Not Resolved]
  - Gamma-glutamyltransferase increased [Recovered/Resolved]
  - Blood immunoglobulin G decreased [Not Recovered/Not Resolved]
  - Blood alkaline phosphatase increased [Recovered/Resolved]
  - Ecchymosis [Recovered/Resolved]
  - Petechiae [Recovered/Resolved]
  - Cough [Recovered/Resolved]
  - Pain in extremity [Recovered/Resolved]
  - Periarthritis [Recovered/Resolved]

NARRATIVE: CASE EVENT DATE: 20230405
